FAERS Safety Report 21770896 (Version 2)
Quarter: 2022Q4

REPORT INFORMATION
  Report Type: Spontaneous
  Country: US (occurrence: US)
  Receive Date: 20221223
  Receipt Date: 20221227
  Transmission Date: 20230112
  Serious: No
  Sender: FDA-Public Use
  Company Number: US-BRISTOL-MYERS SQUIBB COMPANY-2022-158006

PATIENT
  Age: 70 Year
  Sex: Female
  Weight: 87.54 kg

DRUGS (1)
  1. REVLIMID [Suspect]
     Active Substance: LENALIDOMIDE
     Indication: Plasma cell myeloma
     Dosage: FREQ - 2W, 1W OFF
     Route: 048

REACTIONS (2)
  - Off label use [Unknown]
  - Product distribution issue [Unknown]
